FAERS Safety Report 7368606-8 (Version None)
Quarter: 2011Q1

REPORT INFORMATION
  Report Type: 
  Country: None (occurrence: None)
  Receive Date: 20110323
  Receipt Date: 20110310
  Transmission Date: 20110831
  Serious: Yes (Hospitalization, Disabling)
  Sender: FDA-Public Use
  Company Number: US-BAYER-200924709NA

PATIENT
  Sex: Male
  Weight: 75.864 kg

DRUGS (38)
  1. FLUOROURACIL [Suspect]
     Dosage: DAILY DOSE 4500 MG
     Route: 042
     Dates: start: 20090526, end: 20090528
  2. FLUOROURACIL [Suspect]
     Dosage: DAILY DOSE 4475 MG
     Route: 042
     Dates: start: 20090707, end: 20090709
  3. ATENOLOL [Concomitant]
     Dosage: 25 MG, UNK
     Dates: start: 20080519, end: 20091228
  4. AMLODIPINE BESYLATE [Concomitant]
     Dosage: 5 MG, UNK
     Dates: start: 20080519, end: 20091228
  5. SORAFENIB (RAF KINASE INHIBITOR) [Suspect]
     Indication: COLORECTAL CANCER METASTATIC
     Dosage: 400 MG, BID
     Route: 048
     Dates: start: 20090526, end: 20090609
  6. SORAFENIB (RAF KINASE INHIBITOR) [Suspect]
     Dosage: 400 MG, QD
     Route: 048
     Dates: start: 20090609, end: 20090615
  7. OXALIPLATIN [Suspect]
     Dosage: DAILY DOSE 160 MG
     Route: 042
     Dates: start: 20090707, end: 20090707
  8. LEUCOVORIN CALCIUM [Suspect]
     Route: 042
     Dates: start: 20090609, end: 20090609
  9. FLUOROURACIL [Suspect]
     Dosage: DAILY DOSE 750 MG
     Route: 040
     Dates: start: 20090707, end: 20090707
  10. ASPIRIN [Concomitant]
     Indication: VITAMIN SUPPLEMENTATION
     Dates: start: 20070101
  11. TAMSULOSIN HCL [Concomitant]
     Dosage: 0.4 MG, UNK
     Dates: start: 20080510, end: 20091228
  12. AMLODIPINE BESYLATE [Concomitant]
     Indication: HYPERTENSION
     Dates: start: 20070101
  13. ASCORBIC ACID [Concomitant]
     Indication: MEDICAL DIET
  14. SIMVASTATIN [Concomitant]
     Dosage: 40 MG, UNK
     Dates: start: 20090519, end: 20091228
  15. ONDANSETRON [Concomitant]
     Indication: PREMEDICATION
     Dosage: 12 MG (DAILY DOSE), ,
     Dates: start: 20090526, end: 20090526
  16. OXALIPLATIN [Suspect]
     Indication: COLORECTAL CANCER METASTATIC
     Dosage: DAILY DOSE 160 MG
     Route: 042
     Dates: start: 20090526, end: 20090526
  17. FLUOROURACIL [Suspect]
     Indication: COLORECTAL CANCER METASTATIC
     Dosage: DAILY DOSE 750 MG
     Route: 040
     Dates: start: 20090526, end: 20090526
  18. FLUOROURACIL [Suspect]
     Dosage: DAILY DOSE 4450 MG
     Route: 042
     Dates: start: 20090609, end: 20090611
  19. ATENOLOL [Concomitant]
     Indication: HYPERTENSION
     Dates: start: 20070101
  20. ASCORBIC ACID [Concomitant]
     Indication: VITAMIN SUPPLEMENTATION
     Dates: start: 20090519, end: 20091228
  21. LEUCOVORIN CALCIUM [Suspect]
     Indication: COLORECTAL CANCER METASTATIC
     Dosage: DAILY DOSE 750 MG
     Route: 042
     Dates: start: 20090526, end: 20090526
  22. LISINOPRIL [Concomitant]
     Dosage: 40 MG, UNK
     Dates: start: 20080519, end: 20091228
  23. DEXAMETHASONE [Concomitant]
     Indication: THROMBOSIS PROPHYLAXIS
     Dosage: 10 MG (DAILY DOSE), ,
     Dates: start: 20090526, end: 20090526
  24. DEXAMETHASONE [Concomitant]
     Dosage: 10 MG (DAILY DOSE), ,
     Dates: start: 20090707, end: 20090707
  25. ONDANSETRON [Concomitant]
     Dosage: 12 MG (DAILY DOSE), ,
     Dates: start: 20090609, end: 20090609
  26. FLUOROURACIL [Suspect]
     Dosage: DAILY DOSE 750 MG
     Route: 040
     Dates: start: 20090609, end: 20090609
  27. ONDANSETRON [Concomitant]
     Dosage: 12 MG (DAILY DOSE), ,
     Dates: start: 20090707, end: 20090707
  28. HEPARIN [Concomitant]
     Indication: THROMBOSIS PROPHYLAXIS
     Dosage: UNK
     Dates: start: 20090623, end: 20090623
  29. LEUCOVORIN CALCIUM [Suspect]
     Route: 042
     Dates: start: 20090707, end: 20090707
  30. ACETAMINOPHEN [Concomitant]
     Indication: PAIN
     Dosage: UNK UNK, PRN
     Dates: start: 20090526, end: 20091228
  31. DEXAMETHASONE [Concomitant]
     Dosage: 10 MG (DAILY DOSE), ,
     Dates: start: 20090609, end: 20090609
  32. OXALIPLATIN [Suspect]
     Dosage: DAILY DOSE 155 MG
     Route: 042
     Dates: start: 20090609, end: 20090609
  33. ASPIRIN [Concomitant]
     Indication: ISCHAEMIC HEART DISEASE PROPHYLAXIS
     Dosage: 81 MG, UNK
     Dates: start: 20090519, end: 20091228
  34. TAMSULOSIN HCL [Concomitant]
     Indication: BENIGN PROSTATIC HYPERPLASIA
     Dates: start: 20070101
  35. LISINOPRIL [Concomitant]
     Indication: HYPERTENSION
     Dates: start: 20070101
  36. METFORMIN [Concomitant]
     Indication: TYPE 2 DIABETES MELLITUS
     Dates: start: 20070101
  37. METFORMIN [Concomitant]
     Dosage: 500 MG, UNK
     Dates: start: 20080519, end: 20091228
  38. SIMVASTATIN [Concomitant]
     Indication: HYPERLIPIDAEMIA
     Dates: start: 20070101

REACTIONS (4)
  - CELLULITIS [None]
  - OSTEOMYELITIS [None]
  - DIABETIC FOOT INFECTION [None]
  - SKIN ULCER [None]
